FAERS Safety Report 22030902 (Version 1)
Quarter: 2023Q1

REPORT INFORMATION
  Report Type: Spontaneous
  Country: US (occurrence: US)
  Receive Date: 20230223
  Receipt Date: 20230223
  Transmission Date: 20230417
  Serious: Yes (Other)
  Sender: FDA-Public Use
  Company Number: US-Sprout Pharmaceuticals, Inc.-2023SP000049

PATIENT
  Age: 40 Year
  Sex: Female

DRUGS (1)
  1. ADDYI [Suspect]
     Active Substance: FLIBANSERIN
     Indication: Product used for unknown indication
     Dosage: RX 8523349
     Route: 048
     Dates: start: 202302, end: 20230207

REACTIONS (3)
  - Seizure [Unknown]
  - Loss of consciousness [Unknown]
  - Exophthalmos [Unknown]

NARRATIVE: CASE EVENT DATE: 20230201
